FAERS Safety Report 8974442 (Version 1)
Quarter: 2012Q4

REPORT INFORMATION
  Report Type: 
  Country: JP (occurrence: JP)
  Receive Date: 20121219
  Receipt Date: 20121219
  Transmission Date: 20130627
  Serious: Yes (Hospitalization)
  Sender: FDA-Public Use
  Company Number: JP-009507513-2012SP019232

PATIENT
  Age: 70 Year
  Sex: Female
  Weight: 43 kg

DRUGS (7)
  1. PEGINTERFERON ALFA-2B [Suspect]
     Indication: CHRONIC HEPATITIS C
     Dosage: 1.3 Microgram per kilogram, qw
     Route: 058
     Dates: start: 20120326, end: 20120326
  2. PEGINTERFERON ALFA-2B [Suspect]
     Dosage: 0.6 Microgram per kilogram, qw
     Route: 058
     Dates: start: 20120402, end: 20120402
  3. REBETOL [Suspect]
     Indication: CHRONIC HEPATITIS C
     Dosage: 600 mg, QD
     Route: 048
     Dates: start: 20120326, end: 20120328
  4. REBETOL [Suspect]
     Dosage: 400 mg, QD
     Route: 048
     Dates: start: 20120329, end: 20120403
  5. TELAVIC [Suspect]
     Indication: CHRONIC HEPATITIS C
     Dosage: 1500 mg, QD
     Route: 048
     Dates: start: 20120326, end: 20120403
  6. AMLODIN (AMLODIPINE BESYLATE) [Concomitant]
     Indication: HYPERTENSION
     Dosage: FORMULATION POR
     Route: 048
     Dates: end: 20120328
  7. DEPAS [Concomitant]
     Indication: ANXIETY DISORDER
     Dosage: 0.5 mg, qd
     Route: 048

REACTIONS (2)
  - Platelet count decreased [Recovering/Resolving]
  - Renal impairment [Recovering/Resolving]
